FAERS Safety Report 8087458-4 (Version None)
Quarter: 2012Q1

REPORT INFORMATION
  Report Type: 
  Country: None (occurrence: None)
  Receive Date: 20120128
  Receipt Date: 20110523
  Transmission Date: 20120608
  Serious: Yes (Other)
  Sender: FDA-Public Use
  Company Number: US-ABBOTT-11P-163-0728071-00

PATIENT
  Age: 40 Year
  Sex: Female

DRUGS (3)
  1. ASACOL [Concomitant]
     Indication: PRODUCT USED FOR UNKNOWN INDICATION
     Route: 048
  2. HANDFUL OF MEDICATIONS [Concomitant]
     Indication: IMMUNOSUPPRESSION
  3. HUMIRA [Suspect]
     Indication: COLITIS ULCERATIVE
     Dates: start: 20100101, end: 20101001

REACTIONS (2)
  - INTESTINAL RESECTION [None]
  - DRUG INEFFECTIVE [None]
